FAERS Safety Report 6801755-9 (Version None)
Quarter: 2010Q2

REPORT INFORMATION
  Report Type: 
  Country: None (occurrence: None)
  Receive Date: 20100629
  Receipt Date: 20100615
  Transmission Date: 20101027
  Serious: Yes (Other)
  Sender: FDA-Public Use
  Company Number: US-TEVA-238737USA

PATIENT
  Age: 38 Year
  Sex: Female

DRUGS (2)
  1. COPAXONE [Suspect]
     Indication: MULTIPLE SCLEROSIS
     Route: 058
     Dates: start: 20091201
  2. VALSARTAN [Concomitant]

REACTIONS (4)
  - ANGIOEDEMA [None]
  - CONVULSION [None]
  - HYPERTENSION [None]
  - PALPITATIONS [None]
